FAERS Safety Report 6421353-9 (Version None)
Quarter: 2009Q4

REPORT INFORMATION
  Report Type: 
  Country: None (occurrence: None)
  Receive Date: 20091030
  Receipt Date: 20091022
  Transmission Date: 20100525
  Serious: Yes (Hospitalization)
  Sender: FDA-Public Use
  Company Number: PHHO2004AR02677

PATIENT
  Sex: Female
  Weight: 73.5 kg

DRUGS (10)
  1. BLINDED NO TREATMENT RECEIVED NOMED [Suspect]
     Indication: GLUCOSE TOLERANCE IMPAIRED
     Dosage: LEVEL 1
     Route: 048
     Dates: start: 20021023
  2. BLINDED PLACEBO PLACEBO [Suspect]
     Indication: GLUCOSE TOLERANCE IMPAIRED
     Dosage: LEVEL 1
     Route: 048
     Dates: start: 20021023
  3. STARLIX [Suspect]
     Indication: GLUCOSE TOLERANCE IMPAIRED
     Dosage: LEVEL 1
     Route: 048
     Dates: start: 20021023
  4. BLINDED NO TREATMENT RECEIVED NOMED [Suspect]
     Dosage: LEVEL 2
     Route: 048
     Dates: end: 20040218
  5. BLINDED PLACEBO PLACEBO [Suspect]
     Dosage: LEVEL 2
     Route: 048
     Dates: end: 20040218
  6. STARLIX [Suspect]
     Dosage: LEVEL 2
     Route: 048
     Dates: end: 20040218
  7. PLACEBO OR VALSARTAN [Suspect]
     Indication: CARDIOVASCULAR DISORDER
     Dosage: LEVEL 1
     Route: 048
     Dates: start: 20021023
  8. PLACEBO OR VALSARTAN [Suspect]
     Dosage: LEVEL 2
     Route: 048
     Dates: end: 20040218
  9. ATENOLOL [Concomitant]
     Indication: HYPERTENSION
     Dates: start: 20001212
  10. ALPRAZOLAM [Concomitant]
     Indication: ANXIETY
     Dates: start: 20001212

REACTIONS (8)
  - ANXIETY [None]
  - DIZZINESS [None]
  - HYPERTENSION [None]
  - NAUSEA [None]
  - ORTHOSTATIC HYPOTENSION [None]
  - SOMNOLENCE [None]
  - VERTEBROBASILAR INSUFFICIENCY [None]
  - VOMITING [None]
